FAERS Safety Report 16426127 (Version 1)
Quarter: 2019Q2

REPORT INFORMATION
  Report Type: Report from Study
  Country: None (occurrence: PR)
  Receive Date: 20190613
  Receipt Date: 20190613
  Transmission Date: 20190711
  Serious: Yes (Death)
  Sender: FDA-Public Use
  Company Number: PR-ABBVIE-19K-131-2818663-00

PATIENT
  Age: 75 Year
  Sex: Male

DRUGS (2)
  1. BARIUM SULFATE [Suspect]
     Active Substance: BARIUM SULFATE
     Indication: COMPUTERISED TOMOGRAM
     Dosage: BARIUM SULFATE INFILTRATED
     Route: 065
     Dates: start: 201904
  2. HUMIRA [Suspect]
     Active Substance: ADALIMUMAB
     Indication: PSORIATIC ARTHROPATHY
     Route: 058

REACTIONS (3)
  - Procedural complication [Fatal]
  - Vomiting [Unknown]
  - Respiratory arrest [Fatal]

NARRATIVE: CASE EVENT DATE: 201904
